FAERS Safety Report 5448368-1 (Version None)
Quarter: 2007Q3

REPORT INFORMATION
  Report Type: 
  Country: None (occurrence: None)
  Receive Date: 20070906
  Receipt Date: 20070831
  Transmission Date: 20080115
  Serious: Yes (Death)
  Sender: FDA-Public Use
  Company Number: 163-21880-07081957

PATIENT
  Age: 80 Year
  Sex: Male

DRUGS (2)
  1. REVLIMID [Suspect]
     Indication: MULTIPLE MYELOMA
     Dosage: 25 MG, X 21 DAYS EVERY 28 DAYS, ORAL;  X21 DAYS EVERY 28 DAYS, ORAL
     Route: 048
     Dates: start: 20060830, end: 20070701
  2. REVLIMID [Suspect]
     Indication: MULTIPLE MYELOMA
     Dosage: 25 MG, X 21 DAYS EVERY 28 DAYS, ORAL;  X21 DAYS EVERY 28 DAYS, ORAL
     Route: 048
     Dates: start: 20070801

REACTIONS (1)
  - DEATH [None]
